FAERS Safety Report 9740064 (Version 16)
Quarter: 2016Q2

REPORT INFORMATION
  Report Type: Spontaneous
  Country: US (occurrence: US)
  Receive Date: 20131209
  Receipt Date: 20160520
  Transmission Date: 20160815
  Serious: Yes (Hospitalization, Other)
  Sender: FDA-Public Use
  Company Number: US-GLAXOSMITHKLINE-A1037020A

PATIENT
  Age: 23 Year
  Sex: Female

DRUGS (18)
  1. FLOLAN [Suspect]
     Active Substance: EPOPROSTENOL SODIUM
     Dosage: UNK
     Dates: start: 20130711
  2. FLOLAN [Suspect]
     Active Substance: EPOPROSTENOL SODIUM
     Dosage: UNK
     Dates: start: 20130711
  3. FLOLAN [Suspect]
     Active Substance: EPOPROSTENOL SODIUM
     Dosage: UNK
     Dates: start: 20130711
  4. FLOLAN [Suspect]
     Active Substance: EPOPROSTENOL SODIUM
     Dosage: 34.5 NG/KG/MIN CONTINUOUS
     Route: 042
  5. FLOLAN [Suspect]
     Active Substance: EPOPROSTENOL SODIUM
     Dosage: UNK
     Dates: start: 20130711
  6. FLOLAN [Suspect]
     Active Substance: EPOPROSTENOL SODIUM
     Dosage: 35 NG/KG/MIN CO
     Route: 042
  7. FLOLAN [Suspect]
     Active Substance: EPOPROSTENOL SODIUM
     Indication: PULMONARY ARTERIAL HYPERTENSION
     Dosage: DOSE: 5 NG/KG/MINCONCENTRATION: 10,000 NG/MLVIAL STRENGTH: 0.5 MG21 NG/KG/MIN AT CONC. 30,000 N[...]
     Route: 042
     Dates: start: 20130711
  8. FLOLAN [Suspect]
     Active Substance: EPOPROSTENOL SODIUM
     Dosage: 40 DF, CO
  9. TRACLEER [Concomitant]
     Active Substance: BOSENTAN
  10. FLOLAN [Suspect]
     Active Substance: EPOPROSTENOL SODIUM
     Dosage: 32 NG/MG/KG
     Route: 042
  11. FLOLAN [Suspect]
     Active Substance: EPOPROSTENOL SODIUM
     Dosage: UNK
     Dates: start: 20130711
  12. ADCIRCA [Concomitant]
     Active Substance: TADALAFIL
  13. OPSUMIT [Concomitant]
     Active Substance: MACITENTAN
  14. FLOLAN [Suspect]
     Active Substance: EPOPROSTENOL SODIUM
     Dosage: 30 NG/KG/MIN CONTINUOUS; CONCENTRATION: 45,000 NG/ML; PUMP RATE: 72 ML/DAY; VIAL STRENGTH: 1.5 MG
     Route: 042
     Dates: start: 20130711
  15. FLOLAN [Suspect]
     Active Substance: EPOPROSTENOL SODIUM
     Dosage: UNK
     Dates: start: 20130711
  16. FLOLAN [Suspect]
     Active Substance: EPOPROSTENOL SODIUM
     Dosage: 32 NG/KG/MIN CONTINUOUS; CONCENTRATION: 45,000 NG/ML; PUMP RATE: 77 ML/DAY; VIAL STRENGTH: 1.5 MG
     Route: 042
     Dates: start: 20130711
  17. FLOLAN [Suspect]
     Active Substance: EPOPROSTENOL SODIUM
     Dosage: 35 NG/KG/MIN CONTINUOUS
     Route: 042
     Dates: start: 20130711
  18. OPSUMIT [Suspect]
     Active Substance: MACITENTAN
     Indication: PRODUCT USED FOR UNKNOWN INDICATION
     Route: 065

REACTIONS (24)
  - Palpitations [Unknown]
  - Central venous catheterisation [Unknown]
  - Pyrexia [Unknown]
  - Multiple allergies [Unknown]
  - Fatigue [Unknown]
  - Cough [Unknown]
  - Weight decreased [Unknown]
  - Rhinorrhoea [Unknown]
  - Bacteraemia [Unknown]
  - Rash pruritic [Not Recovered/Not Resolved]
  - Nasal congestion [Unknown]
  - Exposure during pregnancy [Unknown]
  - Dyspnoea exertional [Unknown]
  - Catheter site infection [Unknown]
  - Catheter site rash [Not Recovered/Not Resolved]
  - Arthralgia [Unknown]
  - Live birth [Unknown]
  - Pain [Unknown]
  - Catheter site pain [Unknown]
  - Nasopharyngitis [Unknown]
  - Headache [Unknown]
  - Complication associated with device [Unknown]
  - Pruritus [Unknown]
  - Eczema [Unknown]

NARRATIVE: CASE EVENT DATE: 20140415
